FAERS Safety Report 8447439-5 (Version None)
Quarter: 2012Q2

REPORT INFORMATION
  Report Type: 
  Country: None (occurrence: None)
  Receive Date: 20120619
  Receipt Date: 20120607
  Transmission Date: 20120825
  Serious: Yes (Hospitalization)
  Sender: FDA-Public Use
  Company Number: AU-ASTRAZENECA-2012SE04031

PATIENT
  Age: 29791 Day
  Sex: Male

DRUGS (5)
  1. ATORVASTATIN CALCIUM [Concomitant]
     Indication: LIPIDS ABNORMAL
     Route: 048
  2. AZD6140 [Suspect]
     Indication: CORONARY ARTERY DISEASE
     Route: 048
     Dates: start: 20111220, end: 20120114
  3. ASPIRIN [Concomitant]
     Route: 048
  4. KARVEA [Concomitant]
     Indication: MYOCARDIAL ISCHAEMIA
     Route: 048
  5. METOPROLOL SUCCINATE [Concomitant]
     Indication: MYOCARDIAL ISCHAEMIA
     Route: 048

REACTIONS (1)
  - DIVERTICULUM [None]
